FAERS Safety Report 4738323-9 (Version None)
Quarter: 2005Q3

REPORT INFORMATION
  Report Type: 
  Country: None (occurrence: None)
  Receive Date: 20050809
  Receipt Date: 20050615
  Transmission Date: 20060218
  Serious: Yes (Death)
  Sender: FDA-Public Use
  Company Number: PHBS2005JP08530

PATIENT
  Age: 13 Year
  Sex: Male
  Weight: 20 kg

DRUGS (10)
  1. NEORAL [Suspect]
     Indication: LIVER TRANSPLANT
     Dosage: 50 MG, BID
     Route: 048
     Dates: start: 20000811, end: 20010224
  2. NEORAL [Suspect]
     Dosage: 60 MG/DAY
     Route: 048
     Dates: start: 20010225
  3. TEGRETOL [Suspect]
     Indication: CONVULSION
     Dosage: 200 MG/DAY
     Route: 048
     Dates: start: 19970930
  4. SOLU-MEDROL [Concomitant]
     Indication: LIVER TRANSPLANT
     Dosage: UNK, UNK
     Route: 048
     Dates: start: 19950101, end: 19990101
  5. SANDIMMUNE [Suspect]
     Indication: LIVER TRANSPLANT
     Route: 042
     Dates: start: 19950527, end: 19950101
  6. SANDIMMUNE [Suspect]
     Dosage: 200 MG/DAY
     Route: 048
     Dates: start: 19950707, end: 19950805
  7. SANDIMMUNE [Suspect]
     Dosage: 120 MG/DAY
     Route: 048
     Dates: start: 19950806, end: 19970401
  8. SANDIMMUNE [Suspect]
     Dosage: 100 MG/DAY
     Route: 048
     Dates: start: 19970402, end: 19980730
  9. SANDIMMUNE [Suspect]
     Dosage: 120 MG/DAY
     Route: 048
     Dates: start: 19980731, end: 19990203
  10. SANDIMMUNE [Suspect]
     Dosage: 100 MG/DAY
     Route: 048
     Dates: start: 19990204, end: 20000810

REACTIONS (3)
  - ALPHA 1 FOETOPROTEIN INCREASED [None]
  - HEPATIC NEOPLASM MALIGNANT RECURRENT [None]
  - METASTASES TO LYMPH NODES [None]
